FAERS Safety Report 21607499 (Version 2)
Quarter: 2022Q4

REPORT INFORMATION
  Report Type: Spontaneous
  Country: US (occurrence: US)
  Receive Date: 20221117
  Receipt Date: 20221121
  Transmission Date: 20230112
  Serious: No
  Sender: FDA-Public Use
  Company Number: US-ABBVIE-4166222

PATIENT
  Sex: Female

DRUGS (1)
  1. HUMIRA [Suspect]
     Active Substance: ADALIMUMAB
     Indication: Sarcoidosis
     Route: 058
     Dates: start: 202202, end: 20220920

REACTIONS (4)
  - Injection site pain [Unknown]
  - Device issue [Unknown]
  - Off label use [Unknown]
  - Inflammation [Not Recovered/Not Resolved]
